FAERS Safety Report 13078961 (Version 1)
Quarter: 2017Q1

REPORT INFORMATION
  Report Type: Report from Study
  Country: IL (occurrence: IL)
  Receive Date: 20170102
  Receipt Date: 20170102
  Transmission Date: 20170428
  Serious: Yes (Other)
  Sender: FDA-Public Use
  Company Number: PHHY2016IL167717

PATIENT
  Sex: Female

DRUGS (2)
  1. COSENTYX [Suspect]
     Active Substance: SECUKINUMAB
     Dosage: 300 MG, QMO
     Route: 058
  2. COSENTYX [Suspect]
     Active Substance: SECUKINUMAB
     Indication: PSORIATIC ARTHROPATHY
     Dosage: 300 MG, QW
     Route: 058
     Dates: start: 20161009

REACTIONS (6)
  - Arthropathy [Not Recovered/Not Resolved]
  - Incorrect dose administered [Unknown]
  - Inflammation [Unknown]
  - Pyrexia [Recovered/Resolved]
  - Cystitis [Recovered/Resolved]
  - Renal impairment [Unknown]
